FAERS Safety Report 10696583 (Version 2)
Quarter: 2015Q1

REPORT INFORMATION
  Report Type: Spontaneous
  Country: GR (occurrence: GR)
  Receive Date: 20150107
  Receipt Date: 20150107
  Transmission Date: 20150721
  Serious: Yes (Death, Other)
  Sender: FDA-Public Use
  Company Number: GR-GLAXOSMITHKLINE-GR2014010472

PATIENT

DRUGS (14)
  1. ZANTAC [Concomitant]
     Active Substance: RANITIDINE HYDROCHLORIDE
     Dosage: FOR THE DAYS CORTISONE IS ADMINISTERED
     Dates: start: 20140702
  2. MESNA. [Suspect]
     Active Substance: MESNA
     Indication: PRODUCT USED FOR UNKNOWN INDICATION
     Dosage: 800MG BEFORE ENDOXAN AND 800MG 4HOURS AFTER
     Dates: start: 20140702
  3. EMEND [Suspect]
     Active Substance: APREPITANT
     Indication: PROPHYLAXIS OF NAUSEA AND VOMITING
     Dosage: 125-80-80 THE 3 FIRST DAYS OF EACH CYCLE
     Route: 048
     Dates: start: 20140702
  4. ZYLORIC [Concomitant]
     Active Substance: ALLOPURINOL
     Dosage: CONTINUOUSLY
     Dates: start: 20140702
  5. ETOPOSIDE. [Suspect]
     Active Substance: ETOPOSIDE
     Indication: HODGKIN^S DISEASE
     Dosage: 300MG DAYS1-3 INTRAVENOUSLY
     Route: 042
     Dates: start: 20140702
  6. ZOFRON [Suspect]
     Active Substance: ONDANSETRON
     Indication: PROPHYLAXIS OF NAUSEA AND VOMITING
     Dosage: 8MG WHEN HAVING NAUSEA AND UP TO 2 TABLETS PER DAY
     Route: 048
  7. PREZOLON [Suspect]
     Active Substance: PREDNISOLONE
     Indication: HODGKIN^S DISEASE
     Dosage: 20MG 3 TIMES A DAY FOR DAYS1-14
     Route: 048
  8. NATULAN [Suspect]
     Active Substance: PROCARBAZINE HYDROCHLORIDE
     Indication: HODGKIN^S DISEASE
     Dosage: 50MG 3 TIMES A DAY, FOR DAYS 1 TO 7
     Route: 048
     Dates: start: 20140702
  9. ENDOXAN [Suspect]
     Active Substance: CYCLOPHOSPHAMIDE
     Indication: HODGKIN^S DISEASE
     Dosage: 1950MG DAY1 INTRAVENOUSLY
     Route: 042
     Dates: start: 20140702
  10. ZYLORIC [Concomitant]
     Active Substance: ALLOPURINOL
     Dosage: CONTINUOUSLY
  11. ZANTAC [Concomitant]
     Active Substance: RANITIDINE HYDROCHLORIDE
     Indication: PRODUCT USED FOR UNKNOWN INDICATION
     Dosage: FOR THE DAYS CORTISONE IS ADMINISTERED
  12. ADRIBLASTINA [Suspect]
     Active Substance: DOXORUBICIN HYDROCHLORIDE
     Indication: HODGKIN^S DISEASE
     Dosage: 55 MG DAY 1 INTRAVENOUSLY
     Route: 042
     Dates: start: 20140702
  13. TEVAGRASTIM [Suspect]
     Active Substance: FILGRASTIM
     Indication: WHITE BLOOD CELL COUNT DECREASED
     Dosage: ADMINISTERED ON 10/7 AND 12/7/2014, ACCORDING TO THE MOTHER
     Dates: start: 20140710, end: 20140712
  14. ONDANSETRON [Suspect]
     Active Substance: ONDANSETRON
     Indication: PROPHYLAXIS OF NAUSEA AND VOMITING

REACTIONS (7)
  - Pyrexia [Unknown]
  - Vomiting [Unknown]
  - Neutropenia [Unknown]
  - Diarrhoea [Unknown]
  - Myocardial ischaemia [Fatal]
  - Tachycardia [Unknown]
  - Aspiration [Fatal]

NARRATIVE: CASE EVENT DATE: 20140709
